FAERS Safety Report 23029719 (Version 5)
Quarter: 2024Q1

REPORT INFORMATION
  Report Type: Spontaneous
  Country: MX (occurrence: MX)
  Receive Date: 20231004
  Receipt Date: 20240322
  Transmission Date: 20240409
  Serious: Yes (Hospitalization, Other)
  Sender: FDA-Public Use
  Company Number: MX-BEH-2023163663

PATIENT
  Age: 54 Year
  Sex: Male
  Weight: 75 kg

DRUGS (5)
  1. HUMAN IMMUNOGLOBULIN G [Suspect]
     Active Substance: HUMAN IMMUNOGLOBULIN G
     Dosage: 30 GRAM, QD FOR TWO DAYS EVERY MONTH
     Route: 042
  2. HUMAN IMMUNOGLOBULIN G [Suspect]
     Active Substance: HUMAN IMMUNOGLOBULIN G
     Dosage: 30 GRAM, QD FOR TWO DAYS EVERY MONTH
     Route: 042
  3. PHENYTOIN [Suspect]
     Active Substance: PHENYTOIN
     Indication: Seizure
  4. PHENYTOIN [Suspect]
     Active Substance: PHENYTOIN
     Indication: Seizure
  5. KEPPRA [Suspect]
     Active Substance: LEVETIRACETAM
     Indication: Seizure
     Dosage: 50 MILLIGRAM, BID
     Route: 065

REACTIONS (12)
  - Illness [Unknown]
  - Urticaria [Unknown]
  - Rash [Unknown]
  - Urticaria [Not Recovered/Not Resolved]
  - Rash [Not Recovered/Not Resolved]
  - Drug hypersensitivity [Unknown]
  - Anaphylactic reaction [Recovering/Resolving]
  - Rash [Recovering/Resolving]
  - Swelling face [Recovering/Resolving]
  - Angioedema [Recovering/Resolving]
  - Urticaria [Recovering/Resolving]
  - Erythema [Recovering/Resolving]

NARRATIVE: CASE EVENT DATE: 20231122
